FAERS Safety Report 5338007-2 (Version None)
Quarter: 2007Q2

REPORT INFORMATION
  Report Type: 
  Country: None (occurrence: None)
  Receive Date: 20070530
  Receipt Date: 20070520
  Transmission Date: 20071010
  Serious: Yes (Other)
  Sender: FDA-Public Use
  Company Number: PHEH2007US07776

PATIENT
  Sex: Male

DRUGS (1)
  1. SANDOSTATIN LAR [Suspect]
     Indication: ACROMEGALY
     Dosage: 30 MG Q28DAYS
     Dates: start: 20050101

REACTIONS (3)
  - DISEASE PROGRESSION [None]
  - INSULIN-LIKE GROWTH FACTOR INCREASED [None]
  - VENTRICULAR HYPERTROPHY [None]
